FAERS Safety Report 4895628-9 (Version None)
Quarter: 2006Q1

REPORT INFORMATION
  Report Type: 
  Country: None (occurrence: None)
  Receive Date: 20060125
  Receipt Date: 20051227
  Transmission Date: 20060701
  Serious: Yes (Hospitalization)
  Sender: FDA-Public Use
  Company Number: A-JP2005-10689

PATIENT
  Age: 59 Year
  Sex: Female
  Weight: 47.5 kg

DRUGS (16)
  1. TRACLEER [Suspect]
     Indication: PULMONARY HYPERTENSION
     Dosage: 62.5 MG, BID, ORAL; 62.5 MG, QD, ORAL; 62.5 MG, UNK, ORAL; 6.25 MG, UNK, ORAL
     Route: 048
     Dates: start: 20050906, end: 20050914
  2. TRACLEER [Suspect]
     Indication: PULMONARY HYPERTENSION
     Dosage: 62.5 MG, BID, ORAL; 62.5 MG, QD, ORAL; 62.5 MG, UNK, ORAL; 6.25 MG, UNK, ORAL
     Route: 048
     Dates: start: 20050915, end: 20050916
  3. TRACLEER [Suspect]
     Indication: PULMONARY HYPERTENSION
     Dosage: 62.5 MG, BID, ORAL; 62.5 MG, QD, ORAL; 62.5 MG, UNK, ORAL; 6.25 MG, UNK, ORAL
     Route: 048
     Dates: start: 20050917, end: 20050917
  4. TRACLEER [Suspect]
     Indication: PULMONARY HYPERTENSION
     Dosage: 62.5 MG, BID, ORAL; 62.5 MG, QD, ORAL; 62.5 MG, UNK, ORAL; 6.25 MG, UNK, ORAL
     Route: 048
     Dates: start: 20051101, end: 20051102
  5. BENEXATE HYDROCHLORIDE BETADEX [Concomitant]
  6. TOCOPHERYL NICOTINATE       (TOCOPHERYL NICOTINATE) [Concomitant]
  7. FERROUS CITRATE [Concomitant]
  8. FUROSEMIDE [Concomitant]
  9. LOXOPROFEN (LOXOPROFEN) [Concomitant]
  10. BERAPROST SODIUM (BERAPROST SODIUM) [Concomitant]
  11. PREDNISOLONE [Concomitant]
  12. FEXOFENADINE HYDROCHLORIDE [Concomitant]
  13. HYDROCORTISONE SODIUM SUCCINATE [Concomitant]
  14. HYDROXYZINE PAMOATE [Concomitant]
  15. SPIRONOLACTONE [Concomitant]
  16. OXYGEN (OXYGEN) [Concomitant]

REACTIONS (9)
  - ASPARTATE AMINOTRANSFERASE INCREASED [None]
  - BLOOD ALKALINE PHOSPHATASE INCREASED [None]
  - BLOOD BILIRUBIN INCREASED [None]
  - DRUG ERUPTION [None]
  - FEELING HOT [None]
  - GENERALISED ERYTHEMA [None]
  - PRURITUS [None]
  - RASH GENERALISED [None]
  - RASH PAPULAR [None]
